FAERS Safety Report 19983083 (Version 2)
Quarter: 2021Q4

REPORT INFORMATION
  Report Type: Spontaneous
  Country: US (occurrence: US)
  Receive Date: 20211022
  Receipt Date: 20211102
  Transmission Date: 20220303
  Serious: Yes (Life-Threatening, Hospitalization, Other)
  Sender: FDA-Public Use
  Company Number: US-MLMSERVICE-20211008-3150128-1

PATIENT
  Age: 60 Year
  Sex: Male

DRUGS (12)
  1. MORPHINE SULFATE [Suspect]
     Active Substance: MORPHINE SULFATE
     Dosage: 4.7 MG, 1X/DAY, (MORPHINE 15 MG/ ML)
     Route: 037
  2. MORPHINE SULFATE [Suspect]
     Active Substance: MORPHINE SULFATE
     Dosage: 7 MG/ML
  3. MORPHINE SULFATE [Suspect]
     Active Substance: MORPHINE SULFATE
     Dosage: 1.85 MG, DAILY
     Route: 037
  4. KETAMINE [Concomitant]
     Active Substance: KETAMINE
     Indication: Intervertebral disc operation
     Dosage: 20 MG
     Route: 042
  5. SUFENTANIL [Concomitant]
     Active Substance: SUFENTANIL
     Indication: Intervertebral disc operation
     Dosage: 23 UG
     Route: 042
  6. BUPIVACAINE [Concomitant]
     Active Substance: BUPIVACAINE
     Indication: Neck pain
     Dosage: 3.1 MG, 1X/DAY
     Route: 037
  7. BUPIVACAINE [Concomitant]
     Active Substance: BUPIVACAINE
     Dosage: 5 MG/ML
  8. BUPIVACAINE [Concomitant]
     Active Substance: BUPIVACAINE
     Dosage: 1.3 MG, DAILY
     Route: 037
  9. BACLOFEN [Concomitant]
     Active Substance: BACLOFEN
     Indication: Neck pain
     Dosage: 1.25 MG, 1X/DAY
     Route: 037
  10. BACLOFEN [Concomitant]
     Active Substance: BACLOFEN
     Dosage: 4 MG/ML
  11. BACLOFEN [Concomitant]
     Active Substance: BACLOFEN
     Dosage: 1.06 MG, DAILY
     Route: 037
  12. FENTANYL [Concomitant]
     Active Substance: FENTANYL
     Indication: Intervertebral disc operation
     Dosage: 200 UG
     Route: 042

REACTIONS (10)
  - Overdose [Unknown]
  - Respiratory failure [Recovering/Resolving]
  - Miosis [Recovering/Resolving]
  - Hypotension [Recovering/Resolving]
  - Mental status changes [Recovering/Resolving]
  - Somnolence [Recovering/Resolving]
  - Hypercapnia [Recovering/Resolving]
  - Respiratory depression [Recovering/Resolving]
  - Off label use [Unknown]
  - Product use issue [Unknown]
